FAERS Safety Report 20290233 (Version 1)
Quarter: 2022Q1

REPORT INFORMATION
  Report Type: Spontaneous
  Country: US (occurrence: None)
  Receive Date: 20220103
  Receipt Date: 20220103
  Transmission Date: 20220424
  Serious: No
  Sender: FDA-Public Use
  Company Number: None

PATIENT
  Age: 51 Year
  Sex: Male

DRUGS (1)
  1. CLINDAMYCIN [Suspect]
     Active Substance: CLINDAMYCIN
     Dosage: 2 TAB TID PO?
     Route: 048
     Dates: start: 20211122, end: 20211123

REACTIONS (1)
  - Angioedema [None]

NARRATIVE: CASE EVENT DATE: 20211123
